FAERS Safety Report 5639131-7 (Version None)
Quarter: 2008Q1

REPORT INFORMATION
  Report Type: 
  Country: None (occurrence: None)
  Receive Date: 20080226
  Receipt Date: 20080213
  Transmission Date: 20080703
  Serious: Yes (Death, Other)
  Sender: FDA-Public Use
  Company Number: US-ELI_LILLY_AND_COMPANY-US200802003647

PATIENT
  Age: 1 Day
  Sex: Male

DRUGS (4)
  1. FLUOXETINE HYDROCHLORIDE [Suspect]
  2. ALPRAZOLAM [Concomitant]
  3. DIPHENHYDRAMINE HCL [Concomitant]
  4. ZOLPIDEM [Concomitant]

REACTIONS (1)
  - CHILD ABUSE [None]
